FAERS Safety Report 21730548 (Version 2)
Quarter: 2023Q1

REPORT INFORMATION
  Report Type: Spontaneous
  Country: PT (occurrence: PT)
  Receive Date: 20221215
  Receipt Date: 20230102
  Transmission Date: 20230417
  Serious: Yes (Death, Hospitalization)
  Sender: FDA-Public Use
  Company Number: PT-MYLANLABS-2022M1133120

PATIENT
  Age: 86 Year
  Sex: Male

DRUGS (11)
  1. RISPERDAL [Suspect]
     Active Substance: RISPERIDONE
     Indication: Delusion of parasitosis
     Dosage: UNK
     Route: 048
  2. HALDOL [Suspect]
     Active Substance: HALOPERIDOL
     Indication: Product used for unknown indication
     Dosage: 5 MILLIGRAM (TITRATED FROM 1MG UP TO 5MG OR INTOLERANCE
     Route: 048
  3. HALDOL [Suspect]
     Active Substance: HALOPERIDOL
     Dosage: 1 MILLIGRAM (TITRATED FROM 1MG UP TO 5MG OR INTOLERANCE)
     Route: 048
  4. ARIPIPRAZOLE [Suspect]
     Active Substance: ARIPIPRAZOLE
     Indication: Delusion of parasitosis
     Route: 048
  5. ARIPIPRAZOLE [Suspect]
     Active Substance: ARIPIPRAZOLE
     Route: 048
  6. OLANZAPINE [Suspect]
     Active Substance: OLANZAPINE
     Indication: Delusion of parasitosis
     Route: 048
  7. MIRTAZAPINE [Concomitant]
     Active Substance: MIRTAZAPINE
     Route: 048
     Dates: end: 202006
  8. QUETIAPINE [Concomitant]
     Active Substance: QUETIAPINE
     Route: 048
     Dates: end: 202006
  9. PIMOZIDE [Concomitant]
     Active Substance: PIMOZIDE
     Indication: Renal impairment
     Route: 048
  10. PIMOZIDE [Concomitant]
     Active Substance: PIMOZIDE
     Route: 048
  11. PALIPERIDONE [Concomitant]
     Active Substance: PALIPERIDONE
     Route: 048

REACTIONS (4)
  - End stage renal disease [Fatal]
  - Off label use [Unknown]
  - Drug intolerance [Unknown]
  - Extrapyramidal disorder [Unknown]
